FAERS Safety Report 10901228 (Version 1)
Quarter: 2015Q1

REPORT INFORMATION
  Report Type: Spontaneous
  Country: US (occurrence: None)
  Receive Date: 20150303
  Receipt Date: 20150303
  Transmission Date: 20150721
  Serious: Yes (Hospitalization, Disabling)
  Sender: FDA-Public Use
  Company Number: None

PATIENT
  Age: 66 Year
  Sex: Male
  Weight: 98.6 kg

DRUGS (2)
  1. HEPARIN [Suspect]
     Active Substance: HEPARIN SODIUM
     Indication: ATRIAL FIBRILLATION
     Dates: start: 20141208, end: 20141208
  2. HEPARIN [Suspect]
     Active Substance: HEPARIN SODIUM
     Indication: ANTICOAGULANT THERAPY
     Dates: start: 20141208, end: 20141208

REACTIONS (4)
  - Thrombosis [None]
  - Bradycardia [None]
  - Heparin-induced thrombocytopenia [None]
  - Cardiac failure congestive [None]

NARRATIVE: CASE EVENT DATE: 20141208
